FAERS Safety Report 8906986 (Version 1)
Quarter: 2012Q4

REPORT INFORMATION
  Report Type: 
  Country: FR (occurrence: FR)
  Receive Date: 20121114
  Receipt Date: 20121114
  Transmission Date: 20130627
  Serious: Yes (Hospitalization)
  Sender: FDA-Public Use
  Company Number: FR-ASTRAZENECA-2012SE84827

PATIENT
  Age: 22489 Day
  Sex: Male

DRUGS (3)
  1. CRESTOR [Suspect]
     Indication: HYPERLIPIDAEMIA
     Route: 048
     Dates: start: 201206, end: 20121010
  2. COTAREG [Concomitant]
     Indication: HYPERTENSION
     Dosage: DAILY
     Route: 048
     Dates: start: 201206
  3. KARDEGIC [Concomitant]
     Indication: HYPERLIPIDAEMIA
     Route: 048
     Dates: start: 200906

REACTIONS (1)
  - Tendon rupture [Recovering/Resolving]
